FAERS Safety Report 22312930 (Version 2)
Quarter: 2023Q4

REPORT INFORMATION
  Report Type: Report from Study
  Country: ES (occurrence: ES)
  Receive Date: 20230512
  Receipt Date: 20231205
  Transmission Date: 20240109
  Serious: Yes (Hospitalization)
  Sender: FDA-Public Use
  Company Number: ES-SUN PHARMACEUTICAL INDUSTRIES LTD-2023RR-388039

PATIENT
  Age: 63 Year
  Sex: Male
  Weight: 56.5 kg

DRUGS (1)
  1. TILDRAKIZUMAB [Suspect]
     Active Substance: TILDRAKIZUMAB
     Indication: Product used for unknown indication
     Dosage: 100 MILLIGRAM, UNK
     Route: 058
     Dates: start: 20220913, end: 20221213

REACTIONS (1)
  - Cerebrovascular accident [Recovered/Resolved]
